FAERS Safety Report 13689452 (Version 1)
Quarter: 2017Q2

REPORT INFORMATION
  Report Type: Spontaneous
  Country: US (occurrence: US)
  Receive Date: 20170626
  Receipt Date: 20170626
  Transmission Date: 20170830
  Serious: Yes (Other)
  Sender: FDA-Public Use
  Company Number: US-LPDUSPRD-20170863

PATIENT
  Age: 13 Year
  Sex: Male

DRUGS (6)
  1. ETANERCEPT [Suspect]
     Active Substance: ETANERCEPT
     Dosage: DOSE NOT PROVIDED
     Route: 065
  2. ALEMUTUZUMAB [Suspect]
     Active Substance: ALEMTUZUMAB
     Dosage: DOSE NOT PROVIDED
     Route: 065
  3. CYCLOSPORINE INJECTION, USP (866-10) [Suspect]
     Active Substance: CYCLOSPORINE
     Dosage: DOSE NOT PROVIDED
     Route: 065
  4. MELPHALAN. [Suspect]
     Active Substance: MELPHALAN
     Dosage: DOSE NOT PROVIDED
     Route: 065
  5. MICOPHENALATE MOFETIL [Suspect]
     Active Substance: MYCOPHENOLATE MOFETIL
     Dosage: DOSE NOT PROVIDED
  6. INFLIXIMAB [Suspect]
     Active Substance: INFLIXIMAB
     Dosage: DOSE NOT PROVIDED
     Route: 065

REACTIONS (2)
  - Spindle cell sarcoma [Recovered/Resolved]
  - Mycobacterial infection [Unknown]
